FAERS Safety Report 22103983 (Version 1)
Quarter: 2023Q1

REPORT INFORMATION
  Report Type: Spontaneous
  Country: BE (occurrence: BE)
  Receive Date: 20230316
  Receipt Date: 20230316
  Transmission Date: 20230417
  Serious: Yes (Disabling)
  Sender: FDA-Public Use
  Company Number: None

PATIENT
  Age: 39 Year
  Sex: Female
  Weight: 51 kg

DRUGS (1)
  1. MEBENDAZOLE [Suspect]
     Active Substance: MEBENDAZOLE
     Indication: Helminthic infection
     Dosage: TWO DOSES TAKEN TWO WEEKS APART
     Route: 048
     Dates: start: 20230218, end: 20230304

REACTIONS (11)
  - Vomiting [Recovered/Resolved]
  - Nausea [Recovered/Resolved]
  - Dizziness [Recovered/Resolved]
  - Swelling [Recovered/Resolved]
  - Muscle spasms [Recovered/Resolved]
  - Flatulence [Recovered/Resolved]
  - Fatigue [Recovered/Resolved]
  - Chills [Recovered/Resolved]
  - Decreased appetite [Recovered/Resolved]
  - Abdominal pain [Recovered/Resolved]
  - Diarrhoea [Recovered/Resolved]
